FAERS Safety Report 10842848 (Version 1)
Quarter: 2015Q1

REPORT INFORMATION
  Report Type: Spontaneous
  Country: US (occurrence: US)
  Receive Date: 20150220
  Receipt Date: 20150220
  Transmission Date: 20150721
  Serious: No
  Sender: FDA-Public Use
  Company Number: US-ABBVIE-14P-163-1272364-00

PATIENT
  Sex: Female

DRUGS (1)
  1. HUMIRA [Suspect]
     Active Substance: ADALIMUMAB
     Indication: CROHN^S DISEASE

REACTIONS (7)
  - Fatigue [Unknown]
  - Disturbance in attention [Unknown]
  - Gout [Unknown]
  - Abdominal pain upper [Unknown]
  - Gait disturbance [Unknown]
  - Arthralgia [Unknown]
  - Defaecation urgency [Unknown]
